FAERS Safety Report 12902127 (Version 1)
Quarter: 2016Q4

REPORT INFORMATION
  Report Type: Spontaneous
  Country: US (occurrence: US)
  Receive Date: 20161102
  Receipt Date: 20161102
  Transmission Date: 20170207
  Serious: No
  Sender: FDA-Public Use
  Company Number: US-PFIZER INC-2016505352

PATIENT
  Age: 36 Year
  Sex: Male

DRUGS (5)
  1. TRAMADOL. [Concomitant]
     Active Substance: TRAMADOL
     Dosage: UNK, AS NEEDED (TAKE 1-2 TABLET (50 MG) BY ORAL ROUTE EVERY 4-6 HOURS AS NEEDED FOR 30 DAYS)
     Route: 048
  2. AMITRIPTYLINE [Concomitant]
     Active Substance: AMITRIPTYLINE
     Dosage: UNK, 2X/DAY (TAKE 1-3 TABLETS BY ORAL ROUTE AT BEDTIME AT HS FOR 30 DAYS)
     Route: 048
  3. LYRICA [Suspect]
     Active Substance: PREGABALIN
     Dosage: 150 MG, 2X/DAY
     Route: 048
  4. LYRICA [Suspect]
     Active Substance: PREGABALIN
     Dosage: 100 MG, 3X/DAY
     Route: 048
     Dates: end: 20161017
  5. TYLENOL [Concomitant]
     Active Substance: ACETAMINOPHEN
     Dosage: 60 MG, UNK
     Route: 048
     Dates: end: 20161017

REACTIONS (1)
  - Drug effect incomplete [Unknown]
